FAERS Safety Report 22349774 (Version 1)
Quarter: 2023Q2

REPORT INFORMATION
  Report Type: Report from Study
  Country: US (occurrence: US)
  Receive Date: 20230522
  Receipt Date: 20230522
  Transmission Date: 20230721
  Serious: No
  Sender: FDA-Public Use
  Company Number: US-002147023-NVSC2023US115445

PATIENT
  Sex: Male
  Weight: 120.2 kg

DRUGS (4)
  1. COSENTYX [Suspect]
     Active Substance: SECUKINUMAB
     Indication: Psoriasis
     Dosage: UNK
     Route: 065
  2. GLIMEPIRIDE [Concomitant]
     Active Substance: GLIMEPIRIDE
     Indication: Psoriasis
     Dosage: UNK
     Route: 065
  3. PIOGLITAZONE [Concomitant]
     Active Substance: PIOGLITAZONE
     Indication: Psoriasis
     Dosage: UNK
     Route: 065
  4. ASPIRIN [Concomitant]
     Active Substance: ASPIRIN
     Indication: Psoriasis
     Dosage: UNK
     Route: 065

REACTIONS (8)
  - Neoplasm skin [Unknown]
  - Dermatitis [Unknown]
  - Psoriasis [Unknown]
  - Eczema [Unknown]
  - Skin plaque [Unknown]
  - Papule [Unknown]
  - Skin exfoliation [Unknown]
  - Drug ineffective [Unknown]
